FAERS Safety Report 14912196 (Version 1)
Quarter: 2018Q2

REPORT INFORMATION
  Report Type: Spontaneous
  Country: US (occurrence: US)
  Receive Date: 20180518
  Receipt Date: 20180518
  Transmission Date: 20180711
  Serious: Yes (Hospitalization, Other)
  Sender: FDA-Public Use
  Company Number: US-IPCA LABORATORIES LIMITED-IPC-2018-US-001071

PATIENT
  Age: 10 Year
  Sex: Male

DRUGS (2)
  1. COLCHICINE. [Suspect]
     Active Substance: COLCHICINE
     Indication: PRODUCT USED FOR UNKNOWN INDICATION
     Dosage: 4.8 MG, SINGLE
     Route: 048
  2. FUROSEMIDE TABLETS [Suspect]
     Active Substance: FUROSEMIDE
     Indication: PRODUCT USED FOR UNKNOWN INDICATION
     Dosage: 240 MG, SINGLE
     Route: 048

REACTIONS (11)
  - Wrong patient received medication [Unknown]
  - Toxicity to various agents [Unknown]
  - Vomiting [Recovered/Resolved]
  - Sinus bradycardia [Recovered/Resolved]
  - Hypokalaemia [Unknown]
  - Electrocardiogram PR prolongation [Recovered/Resolved]
  - Dizziness [Recovered/Resolved]
  - Sinus arrhythmia [Recovered/Resolved]
  - Overdose [Unknown]
  - Abdominal pain [Recovered/Resolved]
  - Atrioventricular block second degree [Recovered/Resolved]
